FAERS Safety Report 8333919-X (Version None)
Quarter: 2012Q1

REPORT INFORMATION
  Report Type: 
  Country: None (occurrence: None)
  Receive Date: 20120328
  Receipt Date: 20110516
  Transmission Date: 20120608
  Serious: Yes (Other)
  Sender: FDA-Public Use
  Company Number: PHHY2011US42003

PATIENT
  Age: 57 Year
  Sex: Female

DRUGS (6)
  1. LEVEMIR [Concomitant]
  2. BYSTOLIC [Concomitant]
  3. INSULIN, REGULAR (INSULIN) [Concomitant]
  4. VALTURNA [Suspect]
     Dosage: 1 DF (300 MG ALISKIREN + 320 MG VALSARTAN)
  5. NORVASC [Concomitant]
  6. HYDROCHLOROTHIAZIDE [Concomitant]

REACTIONS (5)
  - RHINORRHOEA [None]
  - URINARY TRACT INFECTION [None]
  - WEIGHT INCREASED [None]
  - RENAL IMPAIRMENT [None]
  - PLEURAL EFFUSION [None]
